FAERS Safety Report 22085325 (Version 5)
Quarter: 2024Q4

REPORT INFORMATION
  Report Type: Spontaneous
  Country: US (occurrence: US)
  Receive Date: 20230310
  Receipt Date: 20241018
  Transmission Date: 20250115
  Serious: Yes (Death, Other)
  Sender: VERTEX
  Company Number: US-VERTEX PHARMACEUTICALS-2023-003465

PATIENT
  Age: 55 Year
  Sex: Male

DRUGS (2)
  1. TRIKAFTA [Suspect]
     Active Substance: ELEXACAFTOR\IVACAFTOR\TEZACAFTOR
     Indication: Cystic fibrosis
     Dosage: UNK FREQ
     Route: 048
     Dates: start: 20220919
  2. TRIKAFTA [Suspect]
     Active Substance: ELEXACAFTOR\IVACAFTOR\TEZACAFTOR
     Dosage: REDUCED (TWO DOSES PER WEEK)
     Route: 048
     Dates: end: 20240207

REACTIONS (4)
  - Cystic fibrosis [Fatal]
  - Malignant melanoma [Recovered/Resolved]
  - Lung transplant rejection [Not Recovered/Not Resolved]
  - Oxygen therapy [Not Recovered/Not Resolved]

NARRATIVE: CASE EVENT DATE: 20240207
